FAERS Safety Report 25954174 (Version 1)
Quarter: 2025Q4

REPORT INFORMATION
  Report Type: Spontaneous
  Country: US (occurrence: US)
  Receive Date: 20251023
  Receipt Date: 20251023
  Transmission Date: 20260117
  Serious: Yes (Other)
  Sender: WALMART
  Company Number: US-Walmart-2187169

PATIENT
  Sex: Male

DRUGS (1)
  1. EQUATE ACETAMINOPHEN [Suspect]
     Active Substance: ACETAMINOPHEN

REACTIONS (3)
  - Dyspnoea [Unknown]
  - Gait inability [Unknown]
  - Loss of consciousness [Unknown]
